FAERS Safety Report 14170634 (Version 1)
Quarter: 2017Q4

REPORT INFORMATION
  Report Type: Spontaneous
  Country: CH (occurrence: CH)
  Receive Date: 20171108
  Receipt Date: 20171108
  Transmission Date: 20180321
  Serious: Yes (Congenital Anomaly, Other)
  Sender: FDA-Public Use
  Company Number: CH-UCBSA-2017044068

PATIENT
  Age: 0 Year
  Sex: Female
  Weight: 3.31 kg

DRUGS (3)
  1. KEPPRA [Suspect]
     Active Substance: LEVETIRACETAM
     Dosage: 250 MG, ONCE DAILY (QD)
     Route: 064
     Dates: start: 2016, end: 20170512
  2. KEPPRA [Suspect]
     Active Substance: LEVETIRACETAM
     Dosage: 250 MG, 3X/DAY (TID)
     Route: 063
     Dates: start: 20170512
  3. KEPPRA [Suspect]
     Active Substance: LEVETIRACETAM
     Indication: GENERALISED TONIC-CLONIC SEIZURE
     Dosage: 250 MG, 3X/DAY (TID)
     Route: 064
     Dates: start: 20160903, end: 2016

REACTIONS (5)
  - Hypotonia neonatal [Recovered/Resolved]
  - Congenital vaginal cyst [Recovered/Resolved]
  - Exposure during breast feeding [Unknown]
  - Foetal exposure during pregnancy [Unknown]
  - Jaundice neonatal [Unknown]

NARRATIVE: CASE EVENT DATE: 20160903
